FAERS Safety Report 9935213 (Version 2)
Quarter: 2014Q1

REPORT INFORMATION
  Report Type: Spontaneous
  Country: JP (occurrence: JP)
  Receive Date: 20140228
  Receipt Date: 20140228
  Transmission Date: 20141002
  Serious: Yes (Life-Threatening)
  Sender: FDA-Public Use
  Company Number: JP-TAKEDA-2014TJP001021

PATIENT
  Age: 83 Year
  Sex: Male
  Weight: 52 kg

DRUGS (8)
  1. NESINA TABLETS 25MG [Suspect]
     Indication: DIABETES MELLITUS
     Dosage: 25 MG, QD
     Route: 048
     Dates: start: 20140120, end: 20140123
  2. GLIMEPIRIDE [Interacting]
     Indication: DIABETES MELLITUS
     Dosage: 1 MG, BID
     Route: 048
     Dates: start: 20140120, end: 20140123
  3. BLOPRESS [Concomitant]
     Indication: HYPERTENSION
     Dosage: 8 MG, QD
     Route: 048
     Dates: start: 20130607, end: 20140123
  4. BLOPRESS [Concomitant]
     Dosage: 8 MG, QD
     Route: 048
     Dates: start: 20140125
  5. NORVASC [Concomitant]
     Indication: HYPERTENSION
     Dosage: 5 MG, BID
     Route: 048
     Dates: start: 20090105, end: 20140123
  6. KETAS [Concomitant]
     Indication: CEREBRAL INFARCTION
     Dosage: 10 MG, TID
     Route: 048
     Dates: start: 20120723, end: 20140123
  7. PARIET [Concomitant]
     Indication: GASTROOESOPHAGEAL REFLUX DISEASE
     Dosage: 10 MG, QD
     Route: 048
     Dates: start: 20090910, end: 20140123
  8. PARIET [Concomitant]
     Dosage: 10 MG, QD
     Route: 048
     Dates: start: 20140125

REACTIONS (2)
  - Hypoglycaemia [Recovered/Resolved]
  - Drug interaction [Recovered/Resolved]
